FAERS Safety Report 7972515-0 (Version None)
Quarter: 2011Q4

REPORT INFORMATION
  Report Type: 
  Country: None (occurrence: None)
  Receive Date: 20111122
  Receipt Date: 20110712
  Transmission Date: 20120403
  Serious: No
  Sender: FDA-Public Use
  Company Number: PHHY2011US33056

PATIENT
  Age: 46 Year
  Sex: Female
  Weight: 103.4 kg

DRUGS (1)
  1. GILENYA [Suspect]
     Indication: MULTIPLE SCLEROSIS
     Dosage: 0.5 MG, QD, ORAL
     Route: 048
     Dates: start: 20110414

REACTIONS (6)
  - ABDOMINAL PAIN UPPER [None]
  - STRESS [None]
  - NAUSEA [None]
  - ULCER [None]
  - DIZZINESS [None]
  - VOMITING [None]
